FAERS Safety Report 9483673 (Version 1)
Quarter: 2013Q3

REPORT INFORMATION
  Report Type: Spontaneous
  Country: US (occurrence: US)
  Receive Date: 20130828
  Receipt Date: 20130828
  Transmission Date: 20140515
  Serious: Yes (Death)
  Sender: FDA-Public Use
  Company Number: US-AMGEN-KDL311125

PATIENT
  Age: 50 Year
  Sex: Female

DRUGS (3)
  1. PROCRIT [Suspect]
     Indication: ANAEMIA
     Dosage: 80000 IU, QWK
     Route: 058
     Dates: start: 20071025, end: 20080124
  2. PROCRIT [Suspect]
     Dosage: 80000 IU, QWK
     Route: 058
     Dates: start: 20071025, end: 20080124
  3. PROCRIT [Suspect]
     Dosage: 80000 IU, QWK
     Route: 058
     Dates: start: 20071025, end: 20080124

REACTIONS (1)
  - Death [Fatal]
